FAERS Safety Report 9392748 (Version 1)
Quarter: 2013Q3

REPORT INFORMATION
  Report Type: Report from Study
  Country: DE (occurrence: DE)
  Receive Date: 20130710
  Receipt Date: 20130710
  Transmission Date: 20140515
  Serious: Yes (Hospitalization, Other)
  Sender: FDA-Public Use
  Company Number: DE-JNJFOC-20070801192

PATIENT
  Age: 39 Year
  Sex: Female
  Weight: 98 kg

DRUGS (5)
  1. REMICADE [Suspect]
     Indication: CROHN^S DISEASE
     Route: 042
     Dates: start: 20060123
  2. REMICADE [Suspect]
     Indication: CROHN^S DISEASE
     Route: 042
     Dates: start: 20051107
  3. REMICADE [Suspect]
     Indication: CROHN^S DISEASE
     Route: 042
     Dates: start: 20050926
  4. AZATHIOPRIN [Concomitant]
     Indication: CROHN^S DISEASE
     Dates: start: 200409
  5. BUDENOSID [Concomitant]
     Indication: CROHN^S DISEASE
     Dates: start: 200406

REACTIONS (2)
  - Depression [Recovered/Resolved]
  - Diarrhoea [Recovered/Resolved]
